FAERS Safety Report 5016469-8 (Version None)
Quarter: 2006Q2

REPORT INFORMATION
  Report Type: 
  Country: None (occurrence: None)
  Receive Date: 20060602
  Receipt Date: 20060519
  Transmission Date: 20061013
  Serious: Yes (Other)
  Sender: FDA-Public Use
  Company Number: PHBS2006RO07723

PATIENT
  Age: 62 Year
  Sex: Male
  Weight: 85 kg

DRUGS (3)
  1. MORPHIN HCL [Concomitant]
     Dosage: 120 MG/D
     Route: 065
  2. MORPHINE SULFATE [Concomitant]
     Dosage: 40 MG/D
     Route: 065
  3. ZOMETA [Suspect]
     Indication: METASTASES TO BONE
     Dosage: 4 MG, QMO
     Route: 042
     Dates: start: 20031013, end: 20060317

REACTIONS (3)
  - ASTHENIA [None]
  - JAUNDICE [None]
  - NAUSEA [None]
